FAERS Safety Report 4475237-6 (Version None)
Quarter: 2004Q3

REPORT INFORMATION
  Report Type: 
  Country: None (occurrence: None)
  Receive Date: 20040923
  Receipt Date: 20040624
  Transmission Date: 20050211
  Serious: No
  Sender: FDA-Public Use
  Company Number: USA040671062

PATIENT
  Age: 69 Year
  Sex: Female
  Weight: 68 kg

DRUGS (4)
  1. FORTEO [Suspect]
     Indication: OSTEOPOROSIS
     Dates: start: 20040130
  2. SYNTHROID [Concomitant]
  3. NEXIUM [Concomitant]
  4. ASPIRIN [Concomitant]

REACTIONS (6)
  - INSOMNIA [None]
  - JOINT SWELLING [None]
  - MUSCLE CRAMP [None]
  - PAIN IN EXTREMITY [None]
  - RASH PRURITIC [None]
  - WEIGHT DECREASED [None]
